FAERS Safety Report 6804164-1 (Version None)
Quarter: 2010Q2

REPORT INFORMATION
  Report Type: 
  Country: None (occurrence: None)
  Receive Date: 20100628
  Receipt Date: 20100618
  Transmission Date: 20101027
  Serious: Yes (Hospitalization)
  Sender: FDA-Public Use
  Company Number: BR-GILEAD-2010-0029935

PATIENT
  Sex: Male
  Weight: 50.8 kg

DRUGS (6)
  1. VIREAD [Suspect]
     Indication: HIV INFECTION
     Route: 048
     Dates: start: 20060110
  2. RITONAVIR [Suspect]
     Indication: HIV INFECTION
     Dates: start: 20090110, end: 20091109
  3. TMC114 [Suspect]
     Indication: HIV INFECTION
     Dates: start: 20060110, end: 20091109
  4. COMBIVIR [Concomitant]
     Indication: HIV INFECTION
  5. TERBINAFINE HCL [Concomitant]
     Indication: ONYCHOMYCOSIS
     Dates: start: 20080401
  6. MULTI-VITAMINS [Concomitant]
     Indication: SUPPLEMENTATION THERAPY
     Dates: start: 20080422

REACTIONS (2)
  - POST PROCEDURAL HAEMORRHAGE [None]
  - RENAL FAILURE [None]
